FAERS Safety Report 4531416-0 (Version None)
Quarter: 2004Q4

REPORT INFORMATION
  Report Type: 
  Country: None (occurrence: None)
  Receive Date: 20041215
  Receipt Date: 20041213
  Transmission Date: 20050328
  Serious: Yes (Death)
  Sender: FDA-Public Use
  Company Number: USA-2003-0012174

PATIENT
  Sex: Female

DRUGS (1)
  1. SENOKOT [Suspect]
     Dosage: MG,

REACTIONS (1)
  - ABDOMINAL DISCOMFORT [None]
